FAERS Safety Report 4379889-0 (Version None)
Quarter: 2004Q2

REPORT INFORMATION
  Report Type: 
  Country: None (occurrence: None)
  Receive Date: 20040614
  Receipt Date: 20040603
  Transmission Date: 20050107
  Serious: Yes (Hospitalization)
  Sender: FDA-Public Use
  Company Number: NL-JNJFOC-20040601098

PATIENT
  Age: 29 Year
  Sex: Female

DRUGS (5)
  1. RISPERDAL [Suspect]
     Indication: AGITATION
     Dosage: 1 MG, 2 IN 1 DAY; 1.5 MG, 1 IN 1 DAY
     Dates: start: 20001221, end: 20011016
  2. RISPERDAL [Suspect]
     Indication: RESTLESSNESS
     Dosage: 1 MG, 2 IN 1 DAY; 1.5 MG, 1 IN 1 DAY
     Dates: start: 20001221, end: 20011016
  3. RISPERDAL [Suspect]
     Indication: AGITATION
     Dosage: 1 MG, 2 IN 1 DAY; 1.5 MG, 1 IN 1 DAY
     Dates: start: 20011016
  4. RISPERDAL [Suspect]
     Indication: RESTLESSNESS
     Dosage: 1 MG, 2 IN 1 DAY; 1.5 MG, 1 IN 1 DAY
     Dates: start: 20011016
  5. CILEST (NORGESTIMATE/ETHINYL ESTRADIOL) TABLETS [Suspect]
     Indication: CONTRACEPTION
     Dosage: 1 DOSE (S), 1 IN 1 CYCLICAL
     Dates: start: 19940101

REACTIONS (2)
  - DRUG INTERACTION [None]
  - HYPERPROLACTINAEMIA [None]
